FAERS Safety Report 24340120 (Version 1)
Quarter: 2024Q3

REPORT INFORMATION
  Report Type: Spontaneous
  Country: US (occurrence: None)
  Receive Date: 20240919
  Receipt Date: 20240919
  Transmission Date: 20241016
  Serious: Yes (Hospitalization)
  Sender: Public
  Company Number: None

PATIENT
  Age: 70 Year
  Sex: Male

DRUGS (3)
  1. LENALIDOMIDE [Suspect]
     Active Substance: LENALIDOMIDE
     Indication: Plasma cell myeloma
     Dosage: FREQUENCY : DAILY;?
     Route: 048
     Dates: start: 20240830
  2. CEFEPIME [Concomitant]
  3. CIPROFLOXACIN [Concomitant]

REACTIONS (3)
  - Febrile neutropenia [None]
  - Pseudomonas infection [None]
  - Therapy change [None]

NARRATIVE: CASE EVENT DATE: 20240910
